FAERS Safety Report 17181807 (Version 1)
Quarter: 2019Q4

REPORT INFORMATION
  Report Type: Spontaneous
  Country: FR (occurrence: FR)
  Receive Date: 20191220
  Receipt Date: 20191220
  Transmission Date: 20200122
  Serious: Yes (Life-Threatening)
  Sender: FDA-Public Use
  Company Number: FR-ROCHE-2499193

PATIENT
  Age: 53 Year
  Sex: Male
  Weight: 86.9 kg

DRUGS (17)
  1. TIORFAN [Concomitant]
     Active Substance: RACECADOTRIL
  2. SERESTA [Concomitant]
     Active Substance: OXAZEPAM
  3. CELLCEPT [Suspect]
     Active Substance: MYCOPHENOLATE MOFETIL\MYCOPHENOLATE MOFETIL HYDROCHLORIDE
     Indication: PROPHYLAXIS AGAINST TRANSPLANT REJECTION
     Route: 048
     Dates: start: 20190917, end: 20191109
  4. PROGRAF [Suspect]
     Active Substance: TACROLIMUS
     Indication: PROPHYLAXIS AGAINST TRANSPLANT REJECTION
     Route: 048
  5. LINEZOLIDE [Suspect]
     Active Substance: LINEZOLID
     Indication: OPPORTUNISTIC INFECTION PROPHYLAXIS
     Dosage: MOST RECENT DOSE PRIOR TO AE 09/NOV/2019
     Route: 048
     Dates: start: 20191101
  6. LOXEN [NICARDIPINE HYDROCHLORIDE] [Concomitant]
     Active Substance: NICARDIPINE HYDROCHLORIDE
  7. PIPERACILLIN AND TAZOBACTAM [Suspect]
     Active Substance: PIPERACILLIN SODIUM\TAZOBACTAM SODIUM
     Indication: OPPORTUNISTIC INFECTION PROPHYLAXIS
     Route: 041
     Dates: start: 20191101, end: 20191103
  8. MORPHINE [Concomitant]
     Active Substance: MORPHINE
  9. EUPANTOL [Concomitant]
     Active Substance: PANTOPRAZOLE SODIUM
  10. BACTRIM [Suspect]
     Active Substance: SULFAMETHOXAZOLE\TRIMETHOPRIM
     Indication: INFECTION PROPHYLAXIS
     Route: 048
  11. SANDIMMUN [Suspect]
     Active Substance: CYCLOSPORINE
     Indication: PROPHYLAXIS AGAINST TRANSPLANT REJECTION
     Dosage: MOST RECENT DOSE PRIRO TO AE 31/OCT/2019
     Route: 041
     Dates: start: 20190914
  12. STILNOX [Concomitant]
     Active Substance: ZOLPIDEM TARTRATE
     Route: 065
  13. NOVORAPID [Concomitant]
     Active Substance: INSULIN ASPART
  14. CASPOFUNGINE [Suspect]
     Active Substance: CASPOFUNGIN
     Indication: ANTIFUNGAL PROPHYLAXIS
     Dosage: MOST RECENT DOSE PRIOR TO AE 09/NOV/2019
     Route: 041
     Dates: start: 20191102
  15. ORACILLINE [PHENOXYMETHYLPENICILLIN] [Concomitant]
     Active Substance: PENICILLIN V
  16. VALACYCLOVIR [Suspect]
     Active Substance: VALACYCLOVIR HYDROCHLORIDE
     Indication: ANTIVIRAL PROPHYLAXIS
     Route: 048
     Dates: start: 20190903
  17. CHOLURSO [Concomitant]
     Active Substance: URSODIOL

REACTIONS (1)
  - Renal tubular necrosis [Recovering/Resolving]

NARRATIVE: CASE EVENT DATE: 20191103
